FAERS Safety Report 5229259-8 (Version None)
Quarter: 2007Q1

REPORT INFORMATION
  Report Type: 
  Country: None (occurrence: None)
  Receive Date: 20061201
  Receipt Date: 20060804
  Transmission Date: 20070707
  Serious: No
  Sender: FDA-Public Use
  Company Number: US200608001405

PATIENT
  Age: 55 Year
  Sex: Female

DRUGS (6)
  1. CYMBALTA [Suspect]
     Indication: DIABETIC NEUROPATHY
     Dosage: 30 MG DAILY (1/D) ; 2.60 MG
     Dates: start: 20060718, end: 20060731
  2. CYMBALTA [Suspect]
     Indication: DIABETIC NEUROPATHY
     Dosage: 30 MG DAILY (1/D) ; 2.60 MG
     Dates: start: 20060801
  3. NOVOLOG MIX 70/30 (INSULIN ASPART, PROTAMINE INSULIN ASPART) [Concomitant]
  4. ALTACE [Concomitant]
  5. PIOGLITAZONE HCL [Concomitant]
  6. METFORMIN HCL [Concomitant]

REACTIONS (4)
  - AGITATION [None]
  - FALL [None]
  - INSOMNIA [None]
  - MUSCULAR WEAKNESS [None]
